FAERS Safety Report 6265421-3 (Version None)
Quarter: 2009Q3

REPORT INFORMATION
  Report Type: 
  Country: None (occurrence: None)
  Receive Date: 20090713
  Receipt Date: 20090708
  Transmission Date: 20100115
  Serious: Yes (Hospitalization)
  Sender: FDA-Public Use
  Company Number: IT-BRISTOL-MYERS SQUIBB COMPANY-14640148

PATIENT
  Age: 43 Year
  Sex: Male

DRUGS (7)
  1. REYATAZ [Suspect]
     Indication: ACUTE HIV INFECTION
     Route: 048
     Dates: start: 20081215, end: 20090530
  2. RITONAVIR [Suspect]
     Indication: ACUTE HIV INFECTION
     Route: 048
     Dates: start: 20090201, end: 20090501
  3. CALCITRIOL [Concomitant]
     Dosage: FORMULATION: CAPS
     Route: 048
  4. ARANESP [Concomitant]
     Indication: RENAL FAILURE CHRONIC
     Dosage: 1 DF = ARANESP 20 MCG INJECTABLE SOLUTION 0.5 ML,20 MCG SC
     Route: 058
  5. ASPIRIN [Concomitant]
     Dosage: CARDIOASPIRIN 100 MG GASTRORESISTANT TABS
     Route: 048
  6. ESKIM [Concomitant]
     Dosage: ESKIM 1000 MG CAPS
     Route: 048
  7. ESOMEPRAZOLE MAGNESIUM [Concomitant]
     Dosage: AXIAGO 20 MG GASTRORESISTANT TABS
     Route: 048

REACTIONS (2)
  - BLOOD CREATININE INCREASED [None]
  - HYPERTENSIVE CRISIS [None]
